FAERS Safety Report 5698463-7 (Version None)
Quarter: 2008Q2

REPORT INFORMATION
  Report Type: 
  Country: None (occurrence: None)
  Receive Date: 20080408
  Receipt Date: 20070131
  Transmission Date: 20081010
  Serious: No
  Sender: FDA-Public Use
  Company Number: US-BAYER-US-2006-012907

PATIENT
  Sex: Female

DRUGS (2)
  1. CLIMARA [Suspect]
     Route: 062
  2. CLIMARA [Suspect]
     Route: 062

REACTIONS (2)
  - DIZZINESS [None]
  - HOT FLUSH [None]
